FAERS Safety Report 23438060 (Version 1)
Quarter: 2024Q1

REPORT INFORMATION
  Report Type: Other
  Country: JP (occurrence: None)
  Receive Date: 20240124
  Receipt Date: 20240124
  Transmission Date: 20240409
  Serious: Yes (Other)
  Sender: FDA-Public Use
  Company Number: JP-ROCHE-3496600

PATIENT
  Age: 23 Year
  Sex: Male

DRUGS (2)
  1. ALECTINIB [Suspect]
     Active Substance: ALECTINIB
     Indication: Lung adenocarcinoma
     Route: 065
     Dates: start: 20220428
  2. LORLATINIB [Concomitant]
     Active Substance: LORLATINIB
     Dates: start: 20230120

REACTIONS (1)
  - Metastases to central nervous system [Unknown]
